FAERS Safety Report 6711748-8 (Version None)
Quarter: 2010Q2

REPORT INFORMATION
  Report Type: 
  Country: None (occurrence: None)
  Receive Date: 20100505
  Receipt Date: 20100426
  Transmission Date: 20101027
  Serious: Yes (Death)
  Sender: FDA-Public Use
  Company Number: A0855926A

PATIENT
  Sex: Male
  Weight: 68.2 kg

DRUGS (2)
  1. KIVEXA [Suspect]
     Dosage: 1TAB PER DAY
     Route: 048
     Dates: start: 20100415, end: 20100415
  2. KALETRA [Concomitant]
     Indication: DRUG USE FOR UNKNOWN INDICATION
     Route: 048
     Dates: start: 20100415, end: 20100415

REACTIONS (1)
  - DEATH [None]
